FAERS Safety Report 10195108 (Version 1)
Quarter: 2014Q2

REPORT INFORMATION
  Report Type: Spontaneous
  Country: US (occurrence: US)
  Receive Date: 20140526
  Receipt Date: 20140526
  Transmission Date: 20141212
  Serious: Yes (Disabling)
  Sender: FDA-Public Use
  Company Number: US-009507513-1405USA009690

PATIENT
  Age: 85 Year
  Sex: Male

DRUGS (3)
  1. PROSCAR [Suspect]
     Indication: BENIGN PROSTATIC HYPERPLASIA
     Dosage: 5 MG DAILY
     Route: 048
     Dates: end: 201404
  2. AMIODARONE [Concomitant]
     Dosage: UNK
  3. NEXIUM [Concomitant]

REACTIONS (1)
  - Gynaecomastia [Not Recovered/Not Resolved]
